FAERS Safety Report 7138732-7 (Version None)
Quarter: 2010Q4

REPORT INFORMATION
  Report Type: 
  Country: None (occurrence: None)
  Receive Date: 20101122
  Receipt Date: 20101108
  Transmission Date: 20110411
  Serious: Yes (Other)
  Sender: FDA-Public Use
  Company Number: 2010P1002524

PATIENT
  Age: 61 Year
  Sex: Male

DRUGS (7)
  1. METFORMIN (NO PREF. NAME) [Suspect]
     Indication: TYPE 2 DIABETES MELLITUS
     Dosage: 500 MG; BID; PO
     Route: 048
  2. SIMVASTATIN [Concomitant]
  3. NIASPAN [Concomitant]
  4. GLYBURIDE [Concomitant]
  5. LISINOPRIL [Concomitant]
  6. METOPROLOL [Concomitant]
  7. HYDROCHLOROTHIAZIDE [Concomitant]

REACTIONS (10)
  - ALANINE AMINOTRANSFERASE INCREASED [None]
  - ASPARTATE AMINOTRANSFERASE INCREASED [None]
  - BLOOD ALKALINE PHOSPHATASE INCREASED [None]
  - BLOOD BILIRUBIN INCREASED [None]
  - FATIGUE [None]
  - GAMMA-GLUTAMYLTRANSFERASE INCREASED [None]
  - GLYCOSYLATED HAEMOGLOBIN INCREASED [None]
  - JAUNDICE [None]
  - NAUSEA [None]
  - WEIGHT DECREASED [None]
